FAERS Safety Report 6390569-2 (Version None)
Quarter: 2009Q4

REPORT INFORMATION
  Report Type: 
  Country: None (occurrence: None)
  Receive Date: 20091006
  Receipt Date: 20090922
  Transmission Date: 20100525
  Serious: Yes (Other)
  Sender: FDA-Public Use
  Company Number: US-SOLVAY-00209004102

PATIENT
  Age: 375 Month
  Sex: Male

DRUGS (1)
  1. DRONABINOL [Suspect]
     Indication: DRUG USE FOR UNKNOWN INDICATION
     Dosage: DAILY DOSE: 15 MILLIGRAM(S)
     Route: 048
     Dates: start: 20081001, end: 20090701

REACTIONS (6)
  - ABDOMINAL PAIN [None]
  - FEELING ABNORMAL [None]
  - FLATULENCE [None]
  - LOSS OF CONSCIOUSNESS [None]
  - NAUSEA [None]
  - SEDATION [None]
